FAERS Safety Report 5396321-9 (Version None)
Quarter: 2007Q3

REPORT INFORMATION
  Report Type: 
  Country: None (occurrence: None)
  Receive Date: 20070725
  Receipt Date: 20070716
  Transmission Date: 20080115
  Serious: Yes (Hospitalization, Other)
  Sender: FDA-Public Use
  Company Number: US-ELI_LILLY_AND_COMPANY-US200707003979

PATIENT
  Age: 53 Year
  Sex: Female

DRUGS (21)
  1. BYETTA [Suspect]
     Indication: TYPE 2 DIABETES MELLITUS
     Dosage: 5 UG, AS NEEDED
     Route: 058
     Dates: start: 20060101, end: 20060101
  2. BYETTA [Suspect]
     Dosage: 10 UG, AS NEEDED
     Route: 058
     Dates: start: 20060101
  3. HUMALOG [Concomitant]
     Indication: DIABETES MELLITUS
     Dosage: 20 U, 2/D
  4. HUMULIN /00646001/ [Concomitant]
     Indication: DIABETES MELLITUS
     Dosage: 80 U, 2/D
  5. BENADRYL [Concomitant]
     Dosage: 2 UNK, 4/D
     Route: 048
  6. NABUMETONE [Concomitant]
     Dosage: 500 MG, 2/D
     Route: 048
  7. DOLGIC [Concomitant]
     Indication: HEADACHE
     Dosage: UNK, AS NEEDED
     Route: 048
  8. ZANTAC 150 [Concomitant]
     Indication: GASTROOESOPHAGEAL REFLUX DISEASE
     Dosage: 300 MG, DAILY (1/D)
     Route: 048
  9. BENTYL [Concomitant]
     Indication: IRRITABLE BOWEL SYNDROME
     Dosage: 10 MG, 4/D
     Route: 048
  10. MECLIZINE [Concomitant]
     Indication: DIZZINESS
     Dosage: 25 MG, 4/D
     Route: 048
  11. VALIUM [Concomitant]
     Indication: NERVOUSNESS
     Dosage: 5 MG, 2/D
     Route: 048
  12. VALIUM [Concomitant]
     Dosage: 10 MG, EACH EVENING
     Route: 048
  13. PROMETHAZINE [Concomitant]
     Indication: STOMACH DISCOMFORT
     Dosage: 25 MG, 3/D
     Route: 048
  14. LORCET-HD [Concomitant]
     Indication: BACK PAIN
     Dosage: 10 MG, EVERY 6 HRS
     Route: 048
  15. TIZANIDINE HCL [Concomitant]
     Indication: MUSCLE RELAXANT THERAPY
     Dosage: 8 MG, 2/D
     Route: 048
  16. TYLENOL EXTRA-STRENGTH [Concomitant]
     Indication: PAIN
     Dosage: UNK, DAILY (1/D)
     Route: 048
  17. ASPIRIN [Concomitant]
     Dosage: 81 MG, DAILY (1/D)
     Route: 048
  18. TOPAMAX [Concomitant]
     Dosage: 100 MG, DAILY (1/D)
     Route: 048
  19. ALTACE [Concomitant]
     Indication: BLOOD PRESSURE
     Dosage: 10 MG, DAILY (1/D)
     Route: 048
  20. FLUOXETINE [Concomitant]
     Indication: NERVOUSNESS
     Dosage: 40 MG, DAILY (1/D)
     Route: 048
  21. TYLENOL PM [Concomitant]
     Indication: INSOMNIA
     Dosage: UNK, EACH EVENING

REACTIONS (7)
  - BLOOD GLUCOSE DECREASED [None]
  - BLOOD GLUCOSE INCREASED [None]
  - CONTUSION [None]
  - DIABETIC COMA [None]
  - FALL [None]
  - MUSCLE SPASMS [None]
  - UPPER RESPIRATORY TRACT CONGESTION [None]
